FAERS Safety Report 9236445 (Version 1)
Quarter: 2013Q2

REPORT INFORMATION
  Report Type: Spontaneous
  Country: AU (occurrence: AU)
  Receive Date: 20130417
  Receipt Date: 20130417
  Transmission Date: 20140414
  Serious: Yes (Death, Hospitalization, Other)
  Sender: FDA-Public Use
  Company Number: PHHY2013AU035911

PATIENT
  Age: 5 Year
  Sex: Female

DRUGS (1)
  1. VALPROIC ACID [Suspect]
     Indication: EPILEPSY

REACTIONS (6)
  - Hepatic failure [Fatal]
  - Hepatic congestion [Fatal]
  - Hepatic steatosis [Fatal]
  - Alpers^ disease [Unknown]
  - Mitochondrial hepatopathy [Unknown]
  - Viral infection [Unknown]
